FAERS Safety Report 7507664-4 (Version None)
Quarter: 2011Q2

REPORT INFORMATION
  Report Type: 
  Country: None (occurrence: None)
  Receive Date: 20110527
  Receipt Date: 20110520
  Transmission Date: 20111010
  Serious: Yes (Death, Hospitalization)
  Sender: FDA-Public Use
  Company Number: US-BIOGENIDEC-2011BI014835

PATIENT
  Age: 48 Year
  Sex: Female

DRUGS (10)
  1. DEPAKOTE [Concomitant]
  2. SYNTHROID [Concomitant]
  3. AMILORIDE HYDROCHLORIDE [Concomitant]
  4. NEURONTIN [Concomitant]
  5. LORTAB [Concomitant]
  6. KLONOPIN [Concomitant]
  7. MELOXICAM [Concomitant]
  8. REMERON [Concomitant]
  9. FLEXERIL [Concomitant]
  10. TYSABRI [Suspect]
     Indication: MULTIPLE SCLEROSIS
     Route: 042
     Dates: start: 20080906, end: 20110305

REACTIONS (3)
  - CARDIAC ARREST [None]
  - PNEUMONIA ASPIRATION [None]
  - HYPOXIC-ISCHAEMIC ENCEPHALOPATHY [None]
